FAERS Safety Report 4385854-X (Version None)
Quarter: 2004Q2

REPORT INFORMATION
  Report Type: 
  Country: None (occurrence: None)
  Receive Date: 20040622
  Receipt Date: 20040615
  Transmission Date: 20050107
  Serious: Yes (Death)
  Sender: FDA-Public Use
  Company Number: 04P-007-0264231-01

PATIENT
  Age: 46 Year
  Sex: Female

DRUGS (7)
  1. RITONAVIR SOFT GELATIN CAPSULES (NORVIR) (RITONAVIR) [Suspect]
     Indication: HIV INFECTION
     Dosage: PER ORAL
     Route: 048
  2. TIPRANAVIR [Concomitant]
  3. PIRIMETAMINE [Concomitant]
  4. SULFADIAZINE [Concomitant]
  5. FOLINIC ACID [Concomitant]
  6. CLONAZEPAM [Concomitant]
  7. FERRUM [Concomitant]

REACTIONS (1)
  - DEATH [None]
